FAERS Safety Report 20676596 (Version 1)
Quarter: 2022Q2

REPORT INFORMATION
  Report Type: Spontaneous
  Country: US (occurrence: US)
  Receive Date: 20220406
  Receipt Date: 20220406
  Transmission Date: 20220720
  Serious: No
  Sender: FDA-Public Use
  Company Number: US-drreddys-SPO/USA/22/0148416

PATIENT
  Age: 20 Year
  Sex: Female

DRUGS (2)
  1. ACCUTANE [Suspect]
     Active Substance: ISOTRETINOIN
     Indication: Product used for unknown indication
     Dosage: RMA ISSUE: 13 OCTOBER 2021 11:05:16 AM, 17 NOVEMBER 2021 11:59:38 AM, 24 JANUARY 2022 01:02:49 PM, 2
  2. ACCUTANE [Suspect]
     Active Substance: ISOTRETINOIN
     Dosage: RMA ISSUE DATE: 25 AUGUST 2021 11:50:22 AM

REACTIONS (1)
  - Adverse drug reaction [Unknown]
